FAERS Safety Report 7949133-3 (Version None)
Quarter: 2011Q4

REPORT INFORMATION
  Report Type: 
  Country: None (occurrence: None)
  Receive Date: 20111130
  Receipt Date: 20111125
  Transmission Date: 20120403
  Serious: Yes (Other)
  Sender: FDA-Public Use
  Company Number: JP-ROCHE-1017100

PATIENT
  Sex: Male

DRUGS (12)
  1. LANSOPRAZOLE [Concomitant]
     Indication: GASTRITIS
     Route: 048
     Dates: end: 20100721
  2. CANDESARTAN CILEXETIL [Concomitant]
     Indication: HYPERTENSION
     Route: 048
  3. FUROSEMIDE [Concomitant]
     Indication: HYPERTENSION
     Route: 048
     Dates: end: 20100721
  4. PREDNISOLONE [Concomitant]
     Indication: RHEUMATOID ARTHRITIS
     Route: 048
  5. ACTONEL [Concomitant]
     Indication: OSTEOPOROSIS
     Route: 048
  6. ACTEMRA [Suspect]
     Indication: RHEUMATOID ARTHRITIS
     Route: 041
     Dates: start: 20090625, end: 20100107
  7. MUCOSTA [Concomitant]
     Indication: GASTRITIS
     Route: 048
  8. LOXONIN [Concomitant]
     Indication: RHEUMATOID ARTHRITIS
     Route: 048
     Dates: end: 20100721
  9. PREDNISOLONE [Concomitant]
     Route: 048
     Dates: end: 20100721
  10. LENDORMIN [Concomitant]
     Indication: INSOMNIA
     Route: 048
  11. ACTEMRA [Suspect]
     Route: 041
     Dates: start: 20100302
  12. AMLODIPINE [Concomitant]
     Indication: HYPERTENSION
     Route: 048

REACTIONS (2)
  - PLEURAL EFFUSION [None]
  - PLEURISY [None]
